FAERS Safety Report 18961978 (Version 2)
Quarter: 2021Q1

REPORT INFORMATION
  Report Type: Report from Study
  Country: None (occurrence: CA)
  Receive Date: 20210302
  Receipt Date: 20210309
  Transmission Date: 20210420
  Serious: Yes (Other)
  Sender: FDA-Public Use
  Company Number: CA-ABBVIE-21K-028-3791808-00

PATIENT
  Age: 73 Year
  Sex: Male

DRUGS (3)
  1. RINVOQ [Suspect]
     Active Substance: UPADACITINIB
     Indication: RHEUMATOID ARTHRITIS
     Route: 048
  2. RINVOQ [Suspect]
     Active Substance: UPADACITINIB
     Route: 048
     Dates: start: 20210303
  3. VENTOLIN [Concomitant]
     Active Substance: ALBUTEROL SULFATE
     Indication: PRODUCT USED FOR UNKNOWN INDICATION

REACTIONS (10)
  - Hypertension [Unknown]
  - Dyspnoea [Unknown]
  - Peripheral swelling [Unknown]
  - Hunger [Not Recovered/Not Resolved]
  - Weight abnormal [Unknown]
  - Abdominal pain upper [Unknown]
  - Vascular rupture [Unknown]
  - Wheezing [Unknown]
  - Fear of disease [Unknown]
  - Contusion [Unknown]

NARRATIVE: CASE EVENT DATE: 202102
